FAERS Safety Report 25779831 (Version 1)
Quarter: 2025Q3

REPORT INFORMATION
  Report Type: Spontaneous
  Country: EU (occurrence: EU)
  Receive Date: 20250909
  Receipt Date: 20250909
  Transmission Date: 20251021
  Serious: Yes (Death, Hospitalization)
  Sender: FRESENIUS KABI
  Company Number: None

PATIENT
  Age: 60 Year
  Sex: Male

DRUGS (10)
  1. PEMETREXED [Suspect]
     Active Substance: PEMETREXED
     Indication: Lung carcinoma cell type unspecified stage IV
     Route: 042
     Dates: start: 20250321, end: 20250321
  2. CARBOPLATIN [Suspect]
     Active Substance: CARBOPLATIN
     Indication: Lung carcinoma cell type unspecified stage IV
     Route: 042
     Dates: start: 20250321, end: 20250321
  3. PEMBROLIZUMAB [Suspect]
     Active Substance: PEMBROLIZUMAB
     Indication: Lung carcinoma cell type unspecified stage IV
     Route: 042
     Dates: start: 20250321, end: 20250321
  4. DEXAMETHASONE ABDRUG 4 MG TABLETS, 30 tablets [Concomitant]
     Indication: Chemotherapy side effect prophylaxis
     Route: 048
     Dates: start: 20250317
  5. XIGDUO 5 MG/1000 MG FILM-COATED TABLETS, 56 tablets [Concomitant]
     Indication: Type 2 diabetes mellitus
     Route: 048
     Dates: start: 20241010
  6. OPTOVITE B12 1,000 MICROGRAMS INJECTABLE SOLUTION, 5 ampoules of 2 ml [Concomitant]
     Indication: Chemotherapy side effect prophylaxis
     Route: 030
     Dates: start: 20250317
  7. ZOLICO 400 MICROGRAMS TABLETS, 28 tablets [Concomitant]
     Indication: Chemotherapy side effect prophylaxis
     Route: 048
     Dates: start: 20250317
  8. PALEXIA [Concomitant]
     Active Substance: TAPENTADOL HYDROCHLORIDE
     Indication: Cancer pain
     Route: 048
     Dates: start: 20250225
  9. PALEXIA [Concomitant]
     Active Substance: TAPENTADOL HYDROCHLORIDE
     Route: 048
     Dates: start: 20250317
  10. OMEPRAZOLE CINFAMED 40 mg HARD GASTRORE-RESISTANT CAPSULES, 56 capsule [Concomitant]
     Indication: Product used for unknown indication
     Route: 048
     Dates: start: 20250317

REACTIONS (3)
  - Pancytopenia [Fatal]
  - Pharyngeal inflammation [Fatal]
  - Rectal haemorrhage [Fatal]

NARRATIVE: CASE EVENT DATE: 20250402
